FAERS Safety Report 7961797-7 (Version None)
Quarter: 2011Q4

REPORT INFORMATION
  Report Type: 
  Country: None (occurrence: None)
  Receive Date: 20111207
  Receipt Date: 20111201
  Transmission Date: 20120403
  Serious: Yes (Life-Threatening, Hospitalization, Other)
  Sender: FDA-Public Use
  Company Number: CA-ROXANE LABORATORIES, INC.-2011-RO-01721RO

PATIENT
  Age: 51 Year
  Sex: Male

DRUGS (4)
  1. WARFARIN SODIUM [Suspect]
     Indication: DEEP VEIN THROMBOSIS
  2. RISPERIDONE [Suspect]
  3. PAROXETINE HCL [Suspect]
  4. COCAINE [Suspect]

REACTIONS (5)
  - ANXIETY [None]
  - SUICIDAL IDEATION [None]
  - TARDIVE DYSKINESIA [None]
  - AGITATION [None]
  - SOCIAL PROBLEM [None]
